FAERS Safety Report 18536956 (Version 1)
Quarter: 2020Q4

REPORT INFORMATION
  Report Type: Spontaneous
  Country: US (occurrence: US)
  Receive Date: 20201123
  Receipt Date: 20201123
  Transmission Date: 20210114
  Serious: No
  Sender: FDA-Public Use
  Company Number: US-PERRIGO-20US000175

PATIENT
  Age: 78 Year
  Sex: Female
  Weight: 72.56 kg

DRUGS (10)
  1. LISINOPRIL. [Concomitant]
     Active Substance: LISINOPRIL
     Indication: HYPERTENSION
     Dosage: 10 MG, UNK
     Route: 048
  2. ROSUVASTATIN. [Concomitant]
     Active Substance: ROSUVASTATIN
     Indication: BLOOD CHOLESTEROL INCREASED
     Dosage: UNK, UNK
     Route: 065
  3. DULOXETINE. [Concomitant]
     Active Substance: DULOXETINE
     Indication: DEPRESSION
     Dosage: UNK, UNK
     Route: 048
     Dates: start: 201909
  4. DULOXETINE. [Concomitant]
     Active Substance: DULOXETINE
     Indication: ANXIETY
  5. MORPHINE [Concomitant]
     Active Substance: MORPHINE
     Indication: BONE PAIN
     Dosage: UNK, UNK
     Route: 048
  6. GABAPENTIN. [Concomitant]
     Active Substance: GABAPENTIN
     Indication: BONE PAIN
     Dosage: UNK, UNK
     Route: 048
     Dates: start: 2019
  7. FORTEO [Concomitant]
     Active Substance: TERIPARATIDE
     Indication: BONE PAIN
     Dosage: UNK, UNK
     Route: 058
     Dates: start: 201904
  8. VITAMIN D3 [Concomitant]
     Active Substance: CHOLECALCIFEROL
     Indication: SUPPLEMENTATION THERAPY
     Dosage: UNK, UNK
     Route: 065
     Dates: start: 2019
  9. POLYETHYLENE GLYCOL 3350. [Suspect]
     Active Substance: POLYETHYLENE GLYCOL 3350
     Indication: CONSTIPATION
     Dosage: 17 G, QD
     Route: 048
     Dates: start: 201907, end: 201912
  10. DOCUSATE SODIUM. [Concomitant]
     Active Substance: DOCUSATE SODIUM
     Indication: CONSTIPATION
     Dosage: UNK, UNK
     Route: 048
     Dates: start: 201909

REACTIONS (2)
  - Incorrect product administration duration [Recovered/Resolved]
  - Flatulence [Recovering/Resolving]

NARRATIVE: CASE EVENT DATE: 201907
